FAERS Safety Report 7219568-5 (Version None)
Quarter: 2011Q1

REPORT INFORMATION
  Report Type: 
  Country: None (occurrence: None)
  Receive Date: 20110111
  Receipt Date: 20110107
  Transmission Date: 20110831
  Serious: Yes (Other)
  Sender: FDA-Public Use
  Company Number: IN-ROXANE LABORATORIES, INC.-2011-RO-00033RO

PATIENT
  Age: 50 Year
  Sex: Female

DRUGS (2)
  1. BUPIVICAINE [Suspect]
     Indication: EPIDURAL ANAESTHESIA
     Route: 037
  2. BUTORPHANOL TARTRATE [Suspect]
     Indication: EPIDURAL ANAESTHESIA
     Route: 037

REACTIONS (1)
  - PARALYSIS [None]
